FAERS Safety Report 6418360 (Version 5)
Quarter: 2013Q4

REPORT INFORMATION
  Report Type: Spontaneous
  Country: US (occurrence: GB)
  Receive Date: 20070918
  Receipt Date: 20131022
  Transmission Date: 20140711
  Serious: Yes (Other)
  Sender: FDA-Public Use
  Company Number: GB-PFIZER INC-2007075252

PATIENT
  Age: 48 Year
  Sex: Male
  Weight: 78 kg

DRUGS (4)
  1. CHAMPIX [Suspect]
     Dosage: UNK
     Route: 048
     Dates: start: 20070514
  2. PROPOFOL [Interacting]
     Indication: INDUCTION OF ANAESTHESIA
     Dosage: 600 MG, UNK
     Route: 040
     Dates: start: 20070530
  3. FENTANYL [Interacting]
     Dosage: 100 UG, UNK
     Route: 042
     Dates: start: 20070530
  4. CANNABIS [Concomitant]
     Dosage: UNK

REACTIONS (3)
  - Drug interaction [Unknown]
  - Extra dose administered [Unknown]
  - Drug ineffective [Unknown]
